FAERS Safety Report 5003975-5 (Version None)
Quarter: 2006Q2

REPORT INFORMATION
  Report Type: 
  Country: None (occurrence: None)
  Receive Date: 20060517
  Receipt Date: 20050509
  Transmission Date: 20061013
  Serious: Yes (Disabling)
  Sender: FDA-Public Use
  Company Number: US-AMGEN-US132014

PATIENT
  Sex: Female

DRUGS (3)
  1. ENBREL [Suspect]
     Indication: RHEUMATOID ARTHRITIS
     Route: 058
     Dates: start: 20050127, end: 20050501
  2. ARAVA [Concomitant]
     Route: 065
     Dates: start: 20010801, end: 20050501
  3. CELEBREX [Concomitant]
     Route: 065
     Dates: start: 19990715

REACTIONS (2)
  - FACIAL PALSY [None]
  - HERPES ZOSTER [None]
